FAERS Safety Report 17907263 (Version 1)
Quarter: 2020Q2

REPORT INFORMATION
  Report Type: Report from Study
  Country: None (occurrence: DE)
  Receive Date: 20200617
  Receipt Date: 20200617
  Transmission Date: 20200714
  Serious: Yes (Hospitalization)
  Sender: FDA-Public Use
  Company Number: DE-ABBVIE-20K-062-3447867-00

PATIENT
  Sex: Male

DRUGS (2)
  1. DUODOPA [Suspect]
     Active Substance: CARBIDOPA\LEVODOPA
     Indication: PARKINSON^S DISEASE
     Dosage: MD 8 ML CRD 4.6 ML/H ED 2 ML
     Route: 050
     Dates: start: 20170315
  2. DUODOPA [Suspect]
     Active Substance: CARBIDOPA\LEVODOPA
     Dosage: MD 8 ML CRD 3.5 ED 2 ML
     Route: 050

REACTIONS (4)
  - Parkinson^s disease [Not Recovered/Not Resolved]
  - Bite [Not Recovered/Not Resolved]
  - Scratch [Not Recovered/Not Resolved]
  - General physical health deterioration [Recovering/Resolving]
